FAERS Safety Report 17131200 (Version 1)
Quarter: 2019Q4

REPORT INFORMATION
  Report Type: Spontaneous
  Country: CN (occurrence: CN)
  Receive Date: 20191209
  Receipt Date: 20191209
  Transmission Date: 20200122
  Serious: Yes (Hospitalization, Other)
  Sender: FDA-Public Use
  Company Number: NVSC2019CN061771

PATIENT
  Age: 55 Year
  Sex: Male
  Weight: 73.6 kg

DRUGS (1)
  1. METFORMIN HYDROCHLORIDE,VILDAGLIPTIN [Suspect]
     Active Substance: METFORMIN HYDROCHLORIDE\VILDAGLIPTIN
     Indication: TYPE 2 DIABETES MELLITUS
     Dosage: 1 DF (850 MG/50 MG), QD
     Route: 048
     Dates: start: 20170801

REACTIONS (8)
  - Asthenia [Unknown]
  - Weight decreased [Unknown]
  - Loose tooth [Unknown]
  - Toothache [Unknown]
  - Poor quality sleep [Unknown]
  - Mental disorder [Unknown]
  - Pancreatic duct dilatation [Not Recovered/Not Resolved]
  - Pancreatic atrophy [Not Recovered/Not Resolved]

NARRATIVE: CASE EVENT DATE: 20191202
